FAERS Safety Report 8511392-6 (Version None)
Quarter: 2012Q3

REPORT INFORMATION
  Report Type: 
  Country: None (occurrence: None)
  Receive Date: 20120716
  Receipt Date: 20120704
  Transmission Date: 20120928
  Serious: Yes (Other)
  Sender: FDA-Public Use
  Company Number: ZA-NOVOPROD-332858

PATIENT
  Age: 39 Year
  Sex: Female
  Weight: 65 kg

DRUGS (1)
  1. PROTAPHANE FLEXPEN [Suspect]
     Indication: DIABETES MELLITUS
     Dosage: 12 U, QD
     Route: 058
     Dates: start: 20110122

REACTIONS (3)
  - ABNORMAL LABOUR [None]
  - MATERNAL EXPOSURE DURING PREGNANCY [None]
  - DEHYDRATION [None]
